FAERS Safety Report 5574642-4 (Version None)
Quarter: 2007Q4

REPORT INFORMATION
  Report Type: 
  Country: None (occurrence: None)
  Receive Date: 20071226
  Receipt Date: 20071226
  Transmission Date: 20080405
  Serious: Yes (Death)
  Sender: FDA-Public Use
  Company Number: None

PATIENT
  Age: 64 Year
  Sex: Female
  Weight: 40.8237 kg

DRUGS (2)
  1. FENTANYL 75 MCG [Suspect]
     Indication: SCIATICA
     Dosage: 1 PACH  EVERY 3 DAYS  TRANSDERMAL
     Route: 062
     Dates: start: 20071207, end: 20071210
  2. HYDROMORPHONE   8 MCG [Suspect]
     Dosage: 1 TABLET  EVERY 3 HOURS PRN  PO
     Route: 048
     Dates: start: 20071207, end: 20071210

REACTIONS (4)
  - CARDIAC ARREST [None]
  - DIARRHOEA [None]
  - LETHARGY [None]
  - VOMITING [None]
